FAERS Safety Report 25738282 (Version 1)
Quarter: 2025Q3

REPORT INFORMATION
  Report Type: Spontaneous
  Country: EU (occurrence: EU)
  Receive Date: 20250829
  Receipt Date: 20250829
  Transmission Date: 20251021
  Serious: Yes (Hospitalization, Other)
  Sender: NOVITIUM PHARMA
  Company Number: EU-NOVITIUMPHARMA-2025ITNVP02150

PATIENT
  Age: 25 Year
  Sex: Female

DRUGS (7)
  1. PREDNISONE [Suspect]
     Active Substance: PREDNISONE
     Indication: Insulin autoimmune syndrome
  2. PREDNISONE [Suspect]
     Active Substance: PREDNISONE
  3. Thioctic-acid [Concomitant]
  4. Thioctic-acid [Concomitant]
  5. DEXTROSE [Concomitant]
     Active Substance: DEXTROSE MONOHYDRATE
     Indication: Hypoglycaemia
     Route: 042
  6. DEXTROSE [Concomitant]
     Active Substance: DEXTROSE MONOHYDRATE
  7. DEXTROSE [Concomitant]
     Active Substance: DEXTROSE MONOHYDRATE

REACTIONS (3)
  - Polyhydramnios [Recovered/Resolved]
  - Hyperglycaemia [Recovered/Resolved]
  - Exposure during pregnancy [Unknown]
